FAERS Safety Report 22392981 (Version 1)
Quarter: 2023Q2

REPORT INFORMATION
  Report Type: Spontaneous
  Country: NL (occurrence: NL)
  Receive Date: 20230601
  Receipt Date: 20230601
  Transmission Date: 20230722
  Serious: Yes (Life-Threatening)
  Sender: FDA-Public Use
  Company Number: None

PATIENT
  Sex: Female
  Weight: 69 kg

DRUGS (1)
  1. OXALIPLATIN [Suspect]
     Active Substance: OXALIPLATIN
     Indication: Product used for unknown indication
     Dosage: 1 TIME, THERAPY END DATE : ASKU, OXALIPLATIN INFUSION / BRAND NAME NOT SPECIFIED
     Route: 065
     Dates: start: 20221215

REACTIONS (1)
  - Dyspnoea [Recovered/Resolved]
